FAERS Safety Report 12110431 (Version 2)
Quarter: 2016Q1

REPORT INFORMATION
  Report Type: Report from Study
  Country: BR (occurrence: BR)
  Receive Date: 20160224
  Receipt Date: 20160318
  Transmission Date: 20160526
  Serious: Yes (Other)
  Sender: FDA-Public Use
  Company Number: PHHY2016BR023278

PATIENT
  Sex: Male
  Weight: 110 kg

DRUGS (6)
  1. DIOVAN AMLO FIX [Suspect]
     Active Substance: AMLODIPINE\VALSARTAN
     Indication: BLOOD PRESSURE ABNORMAL
     Dosage: APPROXIMATELY 8 YEARS
     Route: 048
  2. DIOVAN AMLO FIX [Suspect]
     Active Substance: AMLODIPINE\VALSARTAN
     Dosage: 23 DF, QD
     Route: 048
  3. DIOVAN AMLO FIX [Suspect]
     Active Substance: AMLODIPINE\VALSARTAN
     Dosage: 0.5 DF, QD
     Route: 048
  4. VALSARTAN. [Suspect]
     Active Substance: VALSARTAN
     Indication: BLOOD PRESSURE ABNORMAL
     Dosage: 2 DF, (320 MG)
     Route: 048
  5. DIOVAN AMLO FIX [Suspect]
     Active Substance: AMLODIPINE\VALSARTAN
     Dosage: 2 DF, QD (320/5 MG) (ONE IN THE MORNING AND ANOTHER AT NIGHT, BUT IT WAS PRESCRIBED TO USE ONLY ONE)
     Route: 048
  6. DIOVAN AMLO FIX [Suspect]
     Active Substance: AMLODIPINE\VALSARTAN
     Dosage: 1 DF, QD
     Route: 048

REACTIONS (8)
  - Thyroid disorder [Unknown]
  - Pharyngeal disorder [Unknown]
  - Blood pressure fluctuation [Recovering/Resolving]
  - Drug ineffective [Unknown]
  - Nervousness [Unknown]
  - Diabetes mellitus [Unknown]
  - Blood pressure increased [Recovering/Resolving]
  - Wrong technique in product usage process [Unknown]
